FAERS Safety Report 11459407 (Version 1)
Quarter: 2015Q3

REPORT INFORMATION
  Report Type: Spontaneous
  Country: US (occurrence: US)
  Receive Date: 20150904
  Receipt Date: 20150904
  Transmission Date: 20151125
  Serious: No
  Sender: FDA-Public Use
  Company Number: US-JNJFOC-20150813721

PATIENT
  Age: 64 Year
  Sex: Female

DRUGS (3)
  1. RESTYLANE [Suspect]
     Active Substance: HYALURONIC ACID
     Indication: PRODUCT USED FOR UNKNOWN INDICATION
     Route: 065
  2. STELARA [Suspect]
     Active Substance: USTEKINUMAB
     Indication: PSORIASIS
     Route: 058
     Dates: start: 20150805
  3. INH [Concomitant]
     Active Substance: ISONIAZID
     Route: 065

REACTIONS (1)
  - Reaction to drug excipients [Unknown]

NARRATIVE: CASE EVENT DATE: 2015
